FAERS Safety Report 7000567-3 (Version None)
Quarter: 2010Q3

REPORT INFORMATION
  Report Type: 
  Country: None (occurrence: None)
  Receive Date: 20100920
  Receipt Date: 20070426
  Transmission Date: 20110219
  Serious: No
  Sender: FDA-Public Use
  Company Number: US-ASTRAZENECA-2006UW11475

PATIENT
  Age: 13354 Day
  Sex: Female
  Weight: 104.8 kg

DRUGS (17)
  1. SEROQUEL [Suspect]
     Indication: HALLUCINATION
     Dosage: 25MG -600MG
     Route: 048
     Dates: start: 20020530
  2. SEROQUEL [Suspect]
     Dosage: 100 MG, 200 MG
     Route: 048
     Dates: start: 20030201
  3. SEROQUEL [Suspect]
     Route: 048
     Dates: start: 20050501
  4. SEROQUEL [Suspect]
     Route: 048
     Dates: start: 20051101
  5. ABILIFY [Suspect]
     Dates: start: 20040101
  6. ZYPREXA [Suspect]
     Dates: start: 20060201, end: 20060401
  7. GEODON [Suspect]
     Dates: start: 20040101
  8. PAXIL [Concomitant]
     Route: 048
     Dates: start: 20020530
  9. LITHIUM CARBONATE [Concomitant]
     Route: 048
     Dates: start: 20020530
  10. HYDROCHLOROTHIAZIDE [Concomitant]
     Dosage: 12.5MG - 25MG
     Route: 048
     Dates: start: 20020530
  11. TYLENOL [Concomitant]
     Route: 048
     Dates: start: 20030617
  12. FLAGYL [Concomitant]
     Route: 048
     Dates: start: 20030617
  13. ZYRTEC [Concomitant]
     Route: 048
     Dates: start: 20060209
  14. TRAZODONE HCL [Concomitant]
     Route: 048
     Dates: start: 20060209
  15. VISTARIL [Concomitant]
     Route: 048
     Dates: start: 20030617
  16. LIPITOR [Concomitant]
     Route: 048
     Dates: start: 20030617
  17. FLOVENT [Concomitant]
     Route: 048
     Dates: start: 20030617

REACTIONS (5)
  - BLOOD CHOLESTEROL INCREASED [None]
  - DIABETES MELLITUS [None]
  - DYSLIPIDAEMIA [None]
  - HYPERLIPIDAEMIA [None]
  - TYPE 2 DIABETES MELLITUS [None]
